FAERS Safety Report 14111807 (Version 1)
Quarter: 2017Q4

REPORT INFORMATION
  Report Type: Spontaneous
  Country: FR (occurrence: FR)
  Receive Date: 20171020
  Receipt Date: 20171020
  Transmission Date: 20180321
  Serious: Yes (Other)
  Sender: FDA-Public Use
  Company Number: FR-MERCK KGAA-2030967

PATIENT
  Age: 80 Year
  Sex: Female

DRUGS (4)
  1. NOVOTHYROX [Suspect]
     Active Substance: LEVOTHYROXINE SODIUM
     Indication: PRODUCT USED FOR UNKNOWN INDICATION
  2. DOLIPRANE [Concomitant]
     Active Substance: ACETAMINOPHEN
  3. ARNICA MONTANA. [Concomitant]
     Active Substance: HOMEOPATHICS
  4. CYSTINE B6 (CYSTINE B6 BAILLEUL) [Concomitant]

REACTIONS (16)
  - Headache [Unknown]
  - Flatulence [Unknown]
  - Arthropathy [Unknown]
  - Dizziness [Unknown]
  - Nightmare [Unknown]
  - Abdominal distension [Unknown]
  - Visual impairment [Unknown]
  - Insomnia [Unknown]
  - Fatigue [Unknown]
  - Muscle spasms [Unknown]
  - Haematemesis [Unknown]
  - Pain [Unknown]
  - Limb discomfort [Unknown]
  - Monoplegia [Unknown]
  - Osteoarthritis [Unknown]
  - Muscle contractions involuntary [Unknown]

NARRATIVE: CASE EVENT DATE: 201706
